FAERS Safety Report 4689535-4 (Version None)
Quarter: 2005Q2

REPORT INFORMATION
  Report Type: 
  Country: None (occurrence: None)
  Receive Date: 20050614
  Receipt Date: 19991013
  Transmission Date: 20051028
  Serious: Yes (Hospitalization)
  Sender: FDA-Public Use
  Company Number: US-BOEHRINGER INGELHEIM PHARMACEUTICALS, INC.-1999-BP-01332

PATIENT
  Age: 18 Year
  Sex: Male
  Weight: 65.8 kg

DRUGS (12)
  1. VIRAMUNE [Suspect]
     Indication: ACQUIRED IMMUNODEFICIENCY SYNDROME
     Route: 048
     Dates: start: 19971230, end: 19991102
  2. MYSOLINE [Concomitant]
  3. INDERAL [Concomitant]
  4. BOOST [Concomitant]
     Indication: MEDICAL DIET
  5. D4T [Concomitant]
     Indication: HIV INFECTION
     Route: 048
     Dates: start: 19971230, end: 19991102
  6. RITONAVIR [Concomitant]
     Indication: HIV INFECTION
     Route: 048
     Dates: start: 19971230, end: 19991102
  7. RITALIN [Concomitant]
     Route: 048
     Dates: start: 19990415
  8. BACTRIM [Concomitant]
     Indication: PROPHYLAXIS
     Dates: start: 19891207
  9. MONOCLATE [Concomitant]
  10. ACYCLOVIR [Concomitant]
     Indication: HERPES SIMPLEX
     Route: 048
     Dates: start: 19981012
  11. FACTOR 8 REPLACEMENT [Concomitant]
  12. AMANTADINE [Concomitant]

REACTIONS (12)
  - ABNORMAL BEHAVIOUR [None]
  - CENTRAL LINE INFECTION [None]
  - CEREBRAL ATROPHY [None]
  - CONFUSIONAL STATE [None]
  - CONVULSION [None]
  - DEVELOPMENTAL DELAY [None]
  - DIZZINESS [None]
  - HAEMORRHAGE [None]
  - HEAD INJURY [None]
  - HEPATITIS C [None]
  - INFECTION [None]
  - TREMOR [None]
